FAERS Safety Report 9774392 (Version 1)
Quarter: 2013Q4

REPORT INFORMATION
  Report Type: Spontaneous
  Country: US (occurrence: US)
  Receive Date: 20131220
  Receipt Date: 20131220
  Transmission Date: 20140711
  Serious: Yes (Hospitalization, Other)
  Sender: FDA-Public Use
  Company Number: US-UCBSA-106402

PATIENT
  Age: 59 Year
  Sex: Female

DRUGS (6)
  1. LACOSAMIDE [Suspect]
     Indication: EPILEPSY
  2. LEVETIRACETAM [Suspect]
     Indication: EPILEPSY
  3. TOPIRAMATE [Concomitant]
     Indication: EPILEPSY
  4. PHENYTOIN [Concomitant]
     Indication: EPILEPSY
     Dosage: 60 MG
  5. PREDNISONE [Concomitant]
     Indication: EPILEPSY
  6. GABAPENTIN [Concomitant]
     Indication: EPILEPSY

REACTIONS (2)
  - Status epilepticus [Unknown]
  - Drug ineffective [Unknown]
